FAERS Safety Report 17115859 (Version 1)
Quarter: 2019Q4

REPORT INFORMATION
  Report Type: Spontaneous
  Country: SE (occurrence: SE)
  Receive Date: 20191205
  Receipt Date: 20191205
  Transmission Date: 20200122
  Serious: Yes (Hospitalization, Other)
  Sender: FDA-Public Use
  Company Number: SE-SA-2019SA333808

PATIENT
  Age: 29 Year
  Sex: Female

DRUGS (4)
  1. OXAZEPAM. [Suspect]
     Active Substance: OXAZEPAM
     Dosage: UNK UNK, UNK
     Route: 048
     Dates: start: 20180204, end: 20180204
  2. ZOLPIDEM TARTRATE. [Suspect]
     Active Substance: ZOLPIDEM TARTRATE
     Dosage: UNK UNK, UNK
     Route: 048
     Dates: start: 20180204, end: 20180204
  3. PROMETHAZINE HYDROCHLORIDE. [Suspect]
     Active Substance: PROMETHAZINE HYDROCHLORIDE
     Dosage: UNK UNK, UNK
     Route: 048
     Dates: start: 20180204, end: 20180204
  4. PARACETAMOL [Suspect]
     Active Substance: ACETAMINOPHEN
     Dosage: UNK UNK, UNK
     Route: 048
     Dates: start: 20180204, end: 20180204

REACTIONS (4)
  - Intentional overdose [Unknown]
  - Depressed level of consciousness [Recovered/Resolved]
  - Intentional self-injury [Unknown]
  - Tachycardia [Recovered/Resolved]

NARRATIVE: CASE EVENT DATE: 20180204
